FAERS Safety Report 4953586-2 (Version None)
Quarter: 2006Q1

REPORT INFORMATION
  Report Type: 
  Country: None (occurrence: None)
  Receive Date: 20060324
  Receipt Date: 20060221
  Transmission Date: 20060701
  Serious: Yes (Hospitalization, Other)
  Sender: FDA-Public Use
  Company Number: US-MERCK-0602USA05123

PATIENT
  Age: 39 Year
  Sex: Male

DRUGS (1)
  1. VIOXX [Suspect]
     Route: 048

REACTIONS (15)
  - ACUTE MYOCARDIAL INFARCTION [None]
  - ARTHRITIS [None]
  - CHEST DISCOMFORT [None]
  - CHEST PAIN [None]
  - CORONARY ARTERY DISEASE [None]
  - CORONARY ARTERY OCCLUSION [None]
  - DIABETES MELLITUS INSULIN-DEPENDENT [None]
  - DIABETES MELLITUS NON-INSULIN-DEPENDENT [None]
  - DYSPNOEA EXERTIONAL [None]
  - ERECTILE DYSFUNCTION [None]
  - HYPERLIPIDAEMIA [None]
  - HYPERTENSION [None]
  - MENISCUS LESION [None]
  - MYOCARDIAL ISCHAEMIA [None]
  - STAPHYLOCOCCAL INFECTION [None]
